FAERS Safety Report 8765024 (Version 3)
Quarter: 2012Q4

REPORT INFORMATION
  Report Type: 
  Country: US (occurrence: US)
  Receive Date: 20120903
  Receipt Date: 20121231
  Transmission Date: 20130627
  Serious: Yes (Other)
  Sender: FDA-Public Use
  Company Number: US-BIOGENIDEC-2011BI007009

PATIENT
  Age: 24 Year
  Sex: Male

DRUGS (2)
  1. AVONEX [Suspect]
     Indication: MULTIPLE SCLEROSIS
     Route: 030
     Dates: start: 20081115, end: 200906
  2. REBIF [Concomitant]
     Dates: end: 201204

REACTIONS (5)
  - Demyelination [Unknown]
  - Anaphylactic shock [Recovered/Resolved]
  - Convulsion [Recovered/Resolved]
  - Band sensation [Recovered/Resolved]
  - Multiple sclerosis relapse [Unknown]
